FAERS Safety Report 17115772 (Version 1)
Quarter: 2019Q4

REPORT INFORMATION
  Report Type: Spontaneous
  Country: DE (occurrence: DE)
  Receive Date: 20191205
  Receipt Date: 20191205
  Transmission Date: 20200122
  Serious: Yes (Hospitalization)
  Sender: FDA-Public Use
  Company Number: DE-TEVA-2019-DE-1146944

PATIENT
  Age: 3 Year
  Sex: Male

DRUGS (5)
  1. TREOSULFAN [Suspect]
     Active Substance: TREOSULFAN
     Indication: NEUROBLASTOMA
     Dosage: 12 G/M2 FOR 3 DAYS
     Route: 065
  2. ACYCLOVIR. [Concomitant]
     Active Substance: ACYCLOVIR
     Indication: PROPHYLAXIS
     Dosage: 15 MG/KG DAILY; THRICE DAILY FROM DAY 1 POST STEM CELL INFUSION
     Route: 065
  3. MELPHALAN. [Suspect]
     Active Substance: MELPHALAN
     Indication: NEUROBLASTOMA
     Route: 065
  4. AMPHOTERICIN B. [Concomitant]
     Active Substance: AMPHOTERICIN B
     Indication: PROPHYLAXIS
     Dosage: THRICE DAILY
     Route: 048
  5. TRIMETHOPRIM/SULFAMETHOXAZOLE [Concomitant]
     Active Substance: SULFAMETHOXAZOLE\TRIMETHOPRIM
     Indication: PROPHYLAXIS
     Dosage: ADMINISTERED 2 DAYS/WEEK UNTIL DAY 1 POST STEM CELL INFUSION
     Route: 065

REACTIONS (3)
  - Sepsis [Recovered/Resolved]
  - Moraxella infection [Recovered/Resolved]
  - Mucosal inflammation [Recovered/Resolved]
